FAERS Safety Report 4305587-5 (Version None)
Quarter: 2004Q1

REPORT INFORMATION
  Report Type: 
  Country: None (occurrence: None)
  Receive Date: 20040226
  Receipt Date: 20031205
  Transmission Date: 20041129
  Serious: Yes (Other)
  Sender: FDA-Public Use
  Company Number: US-BRISTOL-MYERS SQUIBB COMPANY-12451464

PATIENT
  Age: 64 Year
  Sex: Female
  Weight: 64 kg

DRUGS (3)
  1. ABILIFY [Suspect]
     Dates: start: 20030401
  2. DEPAKOTE [Concomitant]
  3. ATIVAN [Concomitant]

REACTIONS (1)
  - TREMOR [None]
